FAERS Safety Report 11376952 (Version 1)
Quarter: 2015Q3

REPORT INFORMATION
  Report Type: Spontaneous
  Country: JP (occurrence: JP)
  Receive Date: 20150813
  Receipt Date: 20150813
  Transmission Date: 20151125
  Serious: Yes (Other)
  Sender: FDA-Public Use
  Company Number: JP-COREPHARMA LLC-2015COR00161

PATIENT
  Age: 57 Year
  Sex: Male

DRUGS (2)
  1. FAMOTIDINE. [Concomitant]
     Active Substance: FAMOTIDINE
     Dosage: 20 MG, 1X/DAY
  2. URSODIOL. [Suspect]
     Active Substance: URSODIOL
     Indication: CHOLELITHIASIS
     Dosage: 600 MG, 1X/DAY

REACTIONS (2)
  - Cholangitis [Recovered/Resolved]
  - Cholelithiasis [Unknown]
